FAERS Safety Report 5784270-3 (Version None)
Quarter: 2008Q2

REPORT INFORMATION
  Report Type: 
  Country: None (occurrence: None)
  Receive Date: 20080620
  Receipt Date: 20080620
  Transmission Date: 20081010
  Serious: Yes (Other)
  Sender: FDA-Public Use
  Company Number: None

PATIENT
  Age: 20 Year
  Sex: Female
  Weight: 68.0396 kg

DRUGS (1)
  1. SERTRALINE HCL [Suspect]
     Indication: ANXIETY
     Dosage: 50MG PO
     Route: 048
     Dates: start: 20070901

REACTIONS (5)
  - ANXIETY [None]
  - DIARRHOEA [None]
  - NAUSEA [None]
  - TREMOR [None]
  - VOMITING [None]
